FAERS Safety Report 8268426-6 (Version None)
Quarter: 2012Q2

REPORT INFORMATION
  Report Type: 
  Country: None (occurrence: None)
  Receive Date: 20120409
  Receipt Date: 20120402
  Transmission Date: 20120825
  Serious: Yes (Hospitalization)
  Sender: FDA-Public Use
  Company Number: FR-ASTRAZENECA-2012SE22370

PATIENT
  Age: 23999 Day
  Sex: Male

DRUGS (11)
  1. OLMESARTAN MEDOXOMIL [Concomitant]
  2. PLAVIX [Concomitant]
  3. ALLOPURINOL [Concomitant]
  4. LASIX [Concomitant]
  5. PRAZOSIN HCL [Concomitant]
  6. CRESTOR [Suspect]
     Route: 048
     Dates: start: 20080101, end: 20120101
  7. RILMENIDINE [Concomitant]
  8. SYMBICORT [Concomitant]
  9. OXEOL [Concomitant]
  10. PROCORALAN [Concomitant]
  11. GLUCOPHAGE [Concomitant]

REACTIONS (5)
  - RHABDOMYOLYSIS [None]
  - ERYSIPELAS [None]
  - HYPONATRAEMIA [None]
  - MONONEURITIS [None]
  - CARDIAC FAILURE ACUTE [None]
